FAERS Safety Report 15243717 (Version 1)
Quarter: 2018Q3

REPORT INFORMATION
  Report Type: Spontaneous
  Country: US (occurrence: US)
  Receive Date: 20180712
  Receipt Date: 20180712
  Transmission Date: 20181010
  Serious: Yes (Hospitalization)
  Sender: FDA-Public Use
  Company Number: None

PATIENT
  Sex: Male

DRUGS (14)
  1. HUMIRA [Suspect]
     Active Substance: ADALIMUMAB
     Indication: CROHN^S DISEASE
     Route: 058
     Dates: start: 20171209
  2. PREDNISONE. [Concomitant]
     Active Substance: PREDNISONE
  3. FOLIC ACID. [Concomitant]
     Active Substance: FOLIC ACID
  4. DULERA [Suspect]
     Active Substance: FORMOTEROL FUMARATE DIHYDRATE\MOMETASONE FUROATE
  5. VITAMIN D3 [Concomitant]
     Active Substance: CHOLECALCIFEROL
  6. ATORVASTATIN [Concomitant]
     Active Substance: ATORVASTATIN
  7. NOVOLIN R [Concomitant]
     Active Substance: INSULIN HUMAN
  8. SPIRIVA [Concomitant]
     Active Substance: TIOTROPIUM BROMIDE MONOHYDRATE
  9. TAMSULOSIN [Concomitant]
     Active Substance: TAMSULOSIN
  10. LEFLUNOMIDE. [Concomitant]
     Active Substance: LEFLUNOMIDE
  11. HYDROXYCHLOR [Concomitant]
     Active Substance: HYDROXYCHLOROQUINE
  12. METFORMIN [Concomitant]
     Active Substance: METFORMIN HYDROCHLORIDE
  13. PROAIR HFA [Concomitant]
     Active Substance: ALBUTEROL SULFATE
  14. FINASTERIDE. [Concomitant]
     Active Substance: FINASTERIDE

REACTIONS (1)
  - Hospitalisation [None]
